FAERS Safety Report 6530171-2 (Version None)
Quarter: 2010Q1

REPORT INFORMATION
  Report Type: 
  Country: None (occurrence: None)
  Receive Date: 20100107
  Receipt Date: 20091231
  Transmission Date: 20100710
  Serious: Yes (Death, Other)
  Sender: FDA-Public Use
  Company Number: NL-CELGENEUS-114-21880-10010140

PATIENT

DRUGS (8)
  1. REVLIMID [Suspect]
     Indication: MULTIPLE MYELOMA
     Route: 048
  2. CYCLOPHOSPHAMIDE [Suspect]
     Indication: MULTIPLE MYELOMA
     Route: 048
  3. CYCLOPHOSPHAMIDE [Suspect]
     Dosage: DOSE REDUCED TO 50%
     Route: 048
  4. PREDNISONE [Suspect]
     Indication: MULTIPLE MYELOMA
     Dosage: 20 MG / TAPERED TO 10 MG
     Route: 065
  5. ASPIRIN [Concomitant]
     Indication: THROMBOSIS PROPHYLAXIS
     Route: 065
  6. COTRIM [Concomitant]
     Indication: INFECTION PROPHYLAXIS
     Route: 065
  7. PEGYLATED GRANULOCYTE COLONY-STIMULATING FACTOR [Concomitant]
     Indication: NEUTROPENIA
     Route: 065
  8. PEGYLATED GRANULOCYTE COLONY-STIMULATING FACTOR [Concomitant]
     Route: 065

REACTIONS (10)
  - ANAEMIA [None]
  - BLADDER IRRITATION [None]
  - COLITIS [None]
  - DEEP VEIN THROMBOSIS [None]
  - DISEASE PROGRESSION [None]
  - NEUTROPENIA [None]
  - PNEUMONIA [None]
  - THROMBOCYTOPENIA [None]
  - UPPER RESPIRATORY TRACT INFECTION [None]
  - URINARY TRACT INFECTION [None]
